FAERS Safety Report 12524823 (Version 2)
Quarter: 2016Q3

REPORT INFORMATION
  Report Type: Report from Study
  Country: IT (occurrence: IT)
  Receive Date: 20160704
  Receipt Date: 20160726
  Transmission Date: 20161109
  Serious: Yes (Hospitalization)
  Sender: FDA-Public Use
  Company Number: PHHY2016IT090309

PATIENT
  Age: 34 Year
  Sex: Female
  Weight: 56 kg

DRUGS (5)
  1. AMITRIPTYLINE [Concomitant]
     Active Substance: AMITRIPTYLINE
     Indication: DYSAESTHESIA
     Dosage: 50 MG, UNK
     Route: 065
     Dates: start: 20131207
  2. GILENYA [Suspect]
     Active Substance: FINGOLIMOD HYDROCHLORIDE
     Dosage: UNK
     Route: 048
     Dates: start: 20160316
  3. OXCARBAZEPINE. [Concomitant]
     Active Substance: OXCARBAZEPINE
     Indication: DYSAESTHESIA
     Dosage: 300 MG, UNK
     Route: 065
     Dates: start: 201404
  4. GILENYA [Suspect]
     Active Substance: FINGOLIMOD HYDROCHLORIDE
     Indication: RELAPSING-REMITTING MULTIPLE SCLEROSIS
     Dosage: 0.5 MG, QD
     Route: 048
     Dates: start: 20140306, end: 20160221
  5. PREGABALIN. [Concomitant]
     Active Substance: PREGABALIN
     Indication: DYSAESTHESIA
     Dosage: 300 MG, UNK
     Route: 065
     Dates: start: 20131025

REACTIONS (6)
  - Urinary tract obstruction [Recovered/Resolved]
  - Hydronephrosis [Recovered/Resolved]
  - Influenza A virus test positive [Recovered/Resolved]
  - Interstitial lung disease [Unknown]
  - Pyrexia [Recovered/Resolved]
  - Nephrolithiasis [Recovered/Resolved]

NARRATIVE: CASE EVENT DATE: 20160221
